FAERS Safety Report 25918636 (Version 2)
Quarter: 2025Q4

REPORT INFORMATION
  Report Type: Report from Study
  Country: US (occurrence: US)
  Receive Date: 20251014
  Receipt Date: 20251121
  Transmission Date: 20260117
  Serious: Yes (Other)
  Sender: XERIS PHARMACEUTICALS
  Company Number: US-BRIAN CONNER SVP QUALITY AND CHIEF COMPLIANCE OFFICER-2025XER00119

PATIENT
  Sex: Male

DRUGS (12)
  1. RECORLEV [Suspect]
     Active Substance: LEVOKETOCONAZOLE
     Indication: Cushing^s syndrome
     Dosage: 1 TABLET(150 MG), 2X/DAY
     Route: 048
     Dates: start: 20250131, end: 20250403
  2. RECORLEV [Suspect]
     Active Substance: LEVOKETOCONAZOLE
     Dosage: 2 TABLET (300 MG), 1X/DAY IN THE AM
     Route: 048
     Dates: start: 20250404, end: 20250623
  3. RECORLEV [Suspect]
     Active Substance: LEVOKETOCONAZOLE
     Dosage: 1 TABLET (150 MG), 1X/DAY IN THE PM
     Route: 048
     Dates: start: 20250404, end: 20250623
  4. RECORLEV [Suspect]
     Active Substance: LEVOKETOCONAZOLE
     Dosage: 2 TABLETS (300 MG), 2X/DAY
     Route: 048
     Dates: start: 20250624, end: 2025
  5. RECORLEV [Suspect]
     Active Substance: LEVOKETOCONAZOLE
     Dosage: 3 TABLETS (450 MG), 1X/DAY IN THE AM
     Route: 048
     Dates: start: 20250915, end: 2025
  6. RECORLEV [Suspect]
     Active Substance: LEVOKETOCONAZOLE
     Dosage: 2 TABLETS (300 MG), 1X/DAY IN THE EVENING
     Route: 048
     Dates: start: 20250915, end: 2025
  7. RECORLEV [Suspect]
     Active Substance: LEVOKETOCONAZOLE
     Dosage: 3 TABLETS (450 MG), 1X/DAY IN THE AM
     Route: 048
     Dates: start: 2025
  8. RECORLEV [Suspect]
     Active Substance: LEVOKETOCONAZOLE
     Dosage: 2 TABLETS (300 MG), 1X/DAY IN THE EVENING
     Route: 048
     Dates: start: 2025
  9. TESTOSTERONE [Suspect]
     Active Substance: TESTOSTERONE
     Dosage: UNK
  10. TESTOSTERONE [Suspect]
     Active Substance: TESTOSTERONE
     Dosage: DOSE DECREASED
  11. UNSPECIFIED ACID REFLUX MEDICATION [Concomitant]
  12. DIETARY SUPPLEMENT [Concomitant]
     Active Substance: DIETARY SUPPLEMENT

REACTIONS (7)
  - Neuropathy peripheral [Unknown]
  - Blood oestrogen increased [Recovering/Resolving]
  - Blood testosterone increased [Recovering/Resolving]
  - Neuralgia [Unknown]
  - Dizziness [Recovering/Resolving]
  - Flushing [Unknown]
  - Extra dose administered [Unknown]

NARRATIVE: CASE EVENT DATE: 20250101
